FAERS Safety Report 13468863 (Version 1)
Quarter: 2017Q2

REPORT INFORMATION
  Report Type: Spontaneous
  Country: CN (occurrence: CN)
  Receive Date: 20170421
  Receipt Date: 20170421
  Transmission Date: 20170830
  Serious: Yes (Hospitalization)
  Sender: FDA-Public Use
  Company Number: CN-SA-2017SA071853

PATIENT
  Age: 62 Year
  Sex: Male

DRUGS (2)
  1. OTERACIL POTASSIUM/GIMERACIL/TEGAFUR [Suspect]
     Active Substance: GIMERACIL\OTERACIL\TEGAFUR
     Indication: GASTRIC CANCER
     Route: 048
  2. OXALIPLATIN. [Suspect]
     Active Substance: OXALIPLATIN
     Indication: GASTRIC CANCER
     Dosage: 0.2G+5% GLUCOSE INJECTION 250 ML BY INTRAVENOUS DRIP
     Route: 041

REACTIONS (10)
  - Stevens-Johnson syndrome [Recovered/Resolved]
  - Skin exfoliation [Recovered/Resolved]
  - Nail disorder [Recovered/Resolved]
  - Erythema [Recovered/Resolved]
  - Oral disorder [Recovered/Resolved]
  - Oral pain [Recovered/Resolved]
  - Pain [Recovered/Resolved]
  - Hair injury [Recovered/Resolved]
  - Pruritus [Recovered/Resolved]
  - Blister [Recovered/Resolved]

NARRATIVE: CASE EVENT DATE: 20140330
